FAERS Safety Report 8157583-8 (Version None)
Quarter: 2012Q1

REPORT INFORMATION
  Report Type: 
  Country: None (occurrence: None)
  Receive Date: 20120222
  Receipt Date: 20120126
  Transmission Date: 20120608
  Serious: No
  Sender: FDA-Public Use
  Company Number: US-ASTRAZENECA-2012SE05897

PATIENT
  Age: 67 Year
  Sex: Female

DRUGS (2)
  1. TOPROL-XL [Suspect]
     Route: 048
  2. ATENOLOL [Suspect]
     Route: 065

REACTIONS (2)
  - TACHYCARDIA [None]
  - AMNESIA [None]
